FAERS Safety Report 8838709 (Version 1)
Quarter: 2012Q4

REPORT INFORMATION
  Report Type: 
  Country: US (occurrence: US)
  Receive Date: 20121012
  Receipt Date: 20121012
  Transmission Date: 20130627
  Serious: No
  Sender: FDA-Public Use
  Company Number: US-ASTRAZENECA-2012SE76703

PATIENT
  Age: 42 Year
  Sex: Female

DRUGS (5)
  1. PULMICORT TURBUHALER [Suspect]
     Indication: ASTHMA
     Dosage: 200 mcg, two times a day
     Route: 055
  2. ADVAIR [Concomitant]
  3. ANTI HISTAMINES [Concomitant]
  4. FLONASE [Concomitant]
  5. SINGULAIR [Concomitant]

REACTIONS (2)
  - Asthma [Unknown]
  - Drug dose omission [Unknown]
